FAERS Safety Report 25473987 (Version 1)
Quarter: 2025Q2

REPORT INFORMATION
  Report Type: Spontaneous
  Country: US (occurrence: None)
  Receive Date: 20250623
  Receipt Date: 20250623
  Transmission Date: 20250716
  Serious: Yes (Hospitalization)
  Sender: FDA-CTU
  Company Number: None

PATIENT
  Age: 73 Year
  Sex: Female

DRUGS (1)
  1. IBRANCE [Suspect]
     Active Substance: PALBOCICLIB
     Indication: Breast cancer
     Dosage: 125 MG DAILY ORAL
     Route: 048
     Dates: start: 20200105

REACTIONS (4)
  - Cerebral haemorrhage [None]
  - Confusional state [None]
  - Vomiting [None]
  - Lethargy [None]

NARRATIVE: CASE EVENT DATE: 20250414
